FAERS Safety Report 16912198 (Version 1)
Quarter: 2019Q4

REPORT INFORMATION
  Report Type: Spontaneous
  Country: US (occurrence: US)
  Receive Date: 20191014
  Receipt Date: 20191014
  Transmission Date: 20200122
  Serious: Yes (Hospitalization)
  Sender: FDA-Public Use
  Company Number: US-APOTEX-2019AP023245

PATIENT
  Age: 15 Year
  Sex: Male

DRUGS (2)
  1. CLONAZEPAM. [Suspect]
     Active Substance: CLONAZEPAM
     Indication: CATATONIA
     Dosage: 4 MG, UNK
     Route: 048
  2. CLONAZEPAM. [Suspect]
     Active Substance: CLONAZEPAM
     Dosage: 4 MG, UNK
     Route: 048

REACTIONS (4)
  - Perseveration [Recovered/Resolved]
  - Catatonia [Recovered/Resolved]
  - Posturing [Recovered/Resolved]
  - Negativism [Recovered/Resolved]
